FAERS Safety Report 11328359 (Version 1)
Quarter: 2015Q3

REPORT INFORMATION
  Report Type: Other
  Country: DE (occurrence: DE)
  Receive Date: 20150731
  Receipt Date: 20150731
  Transmission Date: 20151125
  Serious: Yes (Life-Threatening)
  Sender: FDA-Public Use
  Company Number: DE-MYLANLABS-2015M1025051

PATIENT

DRUGS (10)
  1. LEPONEX 25 [Concomitant]
     Dosage: 25 MG, QD (DAILY DOSE: 25 MG MILLGRAM(S) EVERY DAYS)
     Route: 048
  2. BISOHEXAL [Concomitant]
     Active Substance: BISOPROLOL FUMARATE
     Dosage: 5 MG, BID (DAILY DOSE: 10 MG MILLGRAM(S) EVERY DAYS)
     Route: 048
  3. SYMBICORT [Concomitant]
     Active Substance: BUDESONIDE\FORMOTEROL FUMARATE DIHYDRATE
     Dosage: 1 DF, BID (DAILY DOSE: 2 DF DOSAGE FORM EVERY DAYS)
     Route: 055
  4. LEPONEX 100 [Concomitant]
     Dosage: 100 MG, BID (DAILY DOSE: 200 MG MILLGRAM(S) EVERY DAYS)
     Route: 048
  5. DIPIPERON SIRUP [Concomitant]
     Dosage: 20 MG, BID (DAILY DOSE: 40 MG MILLGRAM(S) EVERY DAYS)
     Route: 048
  6. CLOZAPIN [Suspect]
     Active Substance: CLOZAPINE
     Indication: SCHIZOPHRENIA, PARANOID TYPE
     Dosage: 250 MG, UNK
     Route: 048
     Dates: start: 2011, end: 20150601
  7. ASPIRIN 100 [Concomitant]
     Active Substance: ASPIRIN
     Dosage: 100 MG, QD (DAILY DOSE: 100 MG MILLGRAM(S) EVERY DAYS)
     Route: 048
  8. CYMBALTA [Concomitant]
     Active Substance: DULOXETINE HYDROCHLORIDE
     Dosage: 60 MG, QD (DAILY DOSE: 60 MG MILLGRAM(S) EVERY DAYS)
     Route: 048
  9. PRAVASTATIN [Concomitant]
     Active Substance: PRAVASTATIN\PRAVASTATIN SODIUM
     Dosage: 20 MG, QD (DAILY DOSE: 20 MG MILLGRAM(S) EVERY DAYS)
     Route: 048
  10. AUGMENTAN [Concomitant]
     Active Substance: AMOXICILLIN\CLAVULANATE POTASSIUM
     Dosage: 1 DF, TID (DAILY DOSE: 3 DF DOSAGE FORM EVERY DAYS)
     Route: 055

REACTIONS (1)
  - Interstitial lung disease [Recovering/Resolving]

NARRATIVE: CASE EVENT DATE: 20150519
